FAERS Safety Report 7230258-5 (Version None)
Quarter: 2011Q1

REPORT INFORMATION
  Report Type: 
  Country: None (occurrence: None)
  Receive Date: 20110118
  Receipt Date: 20110112
  Transmission Date: 20110831
  Serious: No
  Sender: FDA-Public Use
  Company Number: US-PFIZER INC-2011010087

PATIENT

DRUGS (1)
  1. XANAX [Suspect]
     Dosage: UNK

REACTIONS (3)
  - SALIVARY GLAND PAIN [None]
  - SALIVARY HYPERSECRETION [None]
  - SALIVARY GLAND ENLARGEMENT [None]
